FAERS Safety Report 6610630-4 (Version None)
Quarter: 2010Q1

REPORT INFORMATION
  Report Type: 
  Country: None (occurrence: None)
  Receive Date: 20100302
  Receipt Date: 20100224
  Transmission Date: 20100710
  Serious: Yes (Hospitalization)
  Sender: FDA-Public Use
  Company Number: CH-ROCHE-672455

PATIENT
  Sex: Female
  Weight: 69 kg

DRUGS (7)
  1. TOCILIZUMAB [Suspect]
     Indication: RHEUMATOID ARTHRITIS
     Dosage: FORM: INFUSION; DOSE: 8 MG/KG
     Route: 042
     Dates: start: 20090812
  2. TOCILIZUMAB [Suspect]
     Route: 042
     Dates: start: 20090909
  3. TOCILIZUMAB [Suspect]
     Dosage: DOSE INTERRUPTED
     Route: 042
     Dates: start: 20091007, end: 20091202
  4. ARAVA [Concomitant]
     Route: 048
     Dates: start: 20060101
  5. IBRUPROFEN [Concomitant]
     Route: 048
     Dates: start: 20091001
  6. HALCION [Concomitant]
     Dates: start: 20060101
  7. PANTOZOL [Concomitant]
     Dates: start: 20060101

REACTIONS (1)
  - ECZEMA [None]
